FAERS Safety Report 23220473 (Version 1)
Quarter: 2023Q4

REPORT INFORMATION
  Report Type: Report from Study
  Country: US (occurrence: US)
  Receive Date: 20231123
  Receipt Date: 20231123
  Transmission Date: 20240109
  Serious: Yes (Life-Threatening, Hospitalization, Other)
  Sender: FDA-Public Use
  Company Number: US-TAKEDA-2023TUS080654

PATIENT
  Sex: Male

DRUGS (1)
  1. IDURSULFASE [Suspect]
     Active Substance: IDURSULFASE
     Indication: Product used for unknown indication
     Dosage: UNK
     Route: 065

REACTIONS (5)
  - Bacteraemia [Recovering/Resolving]
  - Bedridden [Not Recovered/Not Resolved]
  - Insurance issue [Not Recovered/Not Resolved]
  - Product dose omission issue [Recovering/Resolving]
  - Product use issue [Not Recovered/Not Resolved]
